FAERS Safety Report 9282600 (Version 1)
Quarter: 2013Q2

REPORT INFORMATION
  Report Type: Spontaneous
  Country: US (occurrence: US)
  Receive Date: 20130510
  Receipt Date: 20130510
  Transmission Date: 20140414
  Serious: Yes (Hospitalization, Other)
  Sender: FDA-Public Use
  Company Number: CHPA2013US007835

PATIENT
  Sex: Female

DRUGS (2)
  1. EXCEDRIN UNKNOWN [Suspect]
     Dosage: UNK, UNK
     Route: 048
     Dates: start: 201106, end: 201106
  2. TYLENOL EXTRA STRENGTH [Suspect]
     Dosage: UNK, UNK
     Route: 065

REACTIONS (2)
  - Acute hepatic failure [Unknown]
  - Injury [Unknown]
